FAERS Safety Report 4784026-4 (Version None)
Quarter: 2005Q3

REPORT INFORMATION
  Report Type: 
  Country: None (occurrence: None)
  Receive Date: 20050927
  Receipt Date: 20050808
  Transmission Date: 20060218
  Serious: No
  Sender: FDA-Public Use
  Company Number: USA0508104971

PATIENT
  Age: 32 Year
  Sex: Male

DRUGS (3)
  1. STRATTERA [Suspect]
     Indication: ATTENTION DEFICIT/HYPERACTIVITY DISORDER
     Dosage: 80 MG
     Dates: start: 20050801
  2. NOVOLIN 70/30 [Concomitant]
  3. LIPITOR [Concomitant]

REACTIONS (4)
  - DRY MOUTH [None]
  - FEELING JITTERY [None]
  - GROIN PAIN [None]
  - NAUSEA [None]
